FAERS Safety Report 7225612-1 (Version None)
Quarter: 2011Q1

REPORT INFORMATION
  Report Type: 
  Country: None (occurrence: None)
  Receive Date: 20110107
  Receipt Date: 20110107
  Transmission Date: 20110831
  Serious: No
  Sender: FDA-Public Use
  Company Number: None

PATIENT

DRUGS (3)
  1. OXYCODONE HCL [Concomitant]
  2. OXYCONTIN [Suspect]
     Indication: PAIN
     Dosage: 40MG BID ORAL
     Route: 048
     Dates: start: 20101206
  3. OXYCONTIN [Suspect]
     Indication: LUMBAR SPINAL STENOSIS
     Dosage: 40MG BID ORAL
     Route: 048
     Dates: start: 20101206

REACTIONS (6)
  - ABDOMINAL PAIN [None]
  - MEDICATION RESIDUE [None]
  - RASH [None]
  - PRODUCT QUALITY ISSUE [None]
  - PRURITUS [None]
  - DRUG INEFFECTIVE [None]
